FAERS Safety Report 10202956 (Version 3)
Quarter: 2014Q2

REPORT INFORMATION
  Report Type: Spontaneous
  Country: US (occurrence: US)
  Receive Date: 20140528
  Receipt Date: 20140610
  Transmission Date: 20141212
  Serious: Yes (Hospitalization, Other)
  Sender: FDA-Public Use
  Company Number: US-TEVA-483636USA

PATIENT
  Sex: Female
  Weight: 48.58 kg

DRUGS (27)
  1. ACTIQ [Suspect]
     Indication: NERVE INJURY
     Dosage: 4000 MICROGRAM DAILY;
     Dates: start: 2001
  2. ACTIQ [Suspect]
     Indication: BREAKTHROUGH PAIN
  3. TIZANIDINE [Suspect]
  4. FENTANYL [Concomitant]
     Indication: NERVE INJURY
  5. METOPROLOL [Concomitant]
     Indication: HYPERTENSION
     Dosage: 50 MILLIGRAM DAILY;
  6. SALBUTAMOL [Concomitant]
     Indication: HYPERSENSITIVITY
     Dosage: INHALER
  7. AMITRIPTYLINE [Concomitant]
     Indication: PAIN
  8. BENZOYL PEROXIDE [Concomitant]
     Indication: ACNE
     Dosage: TOPICAL GEL
  9. DOCUSATE SODIUM [Concomitant]
     Indication: FAECES HARD
     Dosage: 400 MILLIGRAM DAILY;
  10. DOCUSATE SODIUM [Concomitant]
  11. DULOXETINE HYDROCHLORIDE [Concomitant]
     Indication: PAIN
  12. ESOMEPRAZOLE MAGNESIUM [Concomitant]
     Indication: GASTRIC DISORDER
  13. LACTINEX [Concomitant]
     Indication: CONSTIPATION
  14. LAMOTRIGINE [Concomitant]
     Indication: PAIN
  15. LEVOTHYROXINE [Concomitant]
     Indication: HYPOTHYROIDISM
  16. NITROFURANTOIN [Concomitant]
     Indication: KIDNEY INFECTION
  17. ONDANSETRON [Concomitant]
     Indication: NAUSEA
  18. ONDANSETRON [Concomitant]
     Indication: VOMITING
  19. PANCRELASE [Concomitant]
     Indication: PANCREATIC DISORDER
     Dosage: FREQUENCY AC
  20. POLYCARBOPHIL CALCIUM [Concomitant]
     Indication: SUPPLEMENTATION THERAPY
  21. PROMETHAZINE [Concomitant]
     Indication: NAUSEA
  22. PROMETHAZINE [Concomitant]
     Indication: VOMITING
  23. RANITIDINE [Concomitant]
     Indication: GASTRIC DISORDER
  24. ROPINIROLE [Concomitant]
     Dosage: HS
  25. SUCRALFATE [Concomitant]
     Dosage: 40 MILLIGRAM DAILY;
  26. SUCRALFATE [Concomitant]
     Dosage: 20 MILLIGRAM DAILY;
  27. TRIAMCINOLONE [Concomitant]
     Indication: BLISTER
     Dosage: SPRAY

REACTIONS (15)
  - Myocardial infarction [Recovered/Resolved]
  - Pancreatic disorder [Not Recovered/Not Resolved]
  - Nerve injury [Not Recovered/Not Resolved]
  - Heart rate increased [Recovered/Resolved]
  - Nervous system disorder [Unknown]
  - Dizziness [Not Recovered/Not Resolved]
  - Emotional distress [Not Recovered/Not Resolved]
  - Skin burning sensation [Not Recovered/Not Resolved]
  - Nausea [Not Recovered/Not Resolved]
  - Headache [Not Recovered/Not Resolved]
  - Neck pain [Not Recovered/Not Resolved]
  - Arthralgia [Not Recovered/Not Resolved]
  - Arthralgia [Not Recovered/Not Resolved]
  - Blood thyroid stimulating hormone decreased [Unknown]
  - Off label use [Unknown]
